FAERS Safety Report 8358792-5 (Version None)
Quarter: 2012Q2

REPORT INFORMATION
  Report Type: 
  Country: None (occurrence: None)
  Receive Date: 20120514
  Receipt Date: 20120502
  Transmission Date: 20120825
  Serious: Yes (Hospitalization, Other)
  Sender: FDA-Public Use
  Company Number: US-ELI_LILLY_AND_COMPANY-US201107001434

PATIENT
  Sex: Female
  Weight: 39 kg

DRUGS (22)
  1. FORTEO [Suspect]
     Dosage: 20 UG, QD
     Route: 058
  2. TYLENOL                                 /SCH/ [Concomitant]
     Dosage: UNK, QD
  3. CLONAZEPAM [Concomitant]
     Dosage: UNK, EACH EVENING
  4. FORTEO [Suspect]
     Dosage: 20 UG, QD
     Route: 058
  5. FIORICET [Concomitant]
  6. DEPAKOTE [Concomitant]
  7. FORTEO [Suspect]
     Dosage: 20 UG, QD
     Route: 058
  8. FORTEO [Suspect]
     Dosage: 20 UG, QD
     Route: 058
  9. FORTEO [Suspect]
     Dosage: 20 UG, QD
     Route: 058
  10. FORTEO [Suspect]
     Dosage: 20 UG, QD
     Route: 058
  11. M.V.I. [Concomitant]
  12. CHLORAZEPAM [Concomitant]
  13. FORTEO [Suspect]
     Indication: OSTEOPOROSIS
     Dosage: 20 UG, QD
     Route: 058
     Dates: start: 20110620
  14. PERCOCET [Concomitant]
     Dosage: UNK, PRN
  15. SUMATRIPTAN [Concomitant]
  16. ZANTAC [Concomitant]
  17. FORTEO [Suspect]
     Dosage: 20 UG, QD
     Route: 058
  18. FORTEO [Suspect]
     Dosage: 20 UG, QD
     Route: 058
  19. NEURONTIN [Concomitant]
     Indication: HEADACHE
     Dosage: UNK, QD
  20. CALCIUM [Concomitant]
  21. LORAZEPAM [Concomitant]
  22. VITAMIN D [Concomitant]

REACTIONS (24)
  - OVERDOSE [None]
  - FATIGUE [None]
  - PARANOIA [None]
  - INJECTION SITE HAEMATOMA [None]
  - BILE DUCT OBSTRUCTION [None]
  - ANAEMIA [None]
  - PNEUMONIA [None]
  - NASOPHARYNGITIS [None]
  - POOR QUALITY SLEEP [None]
  - CYSTITIS [None]
  - CONTUSION [None]
  - MALAISE [None]
  - BIPOLAR DISORDER [None]
  - HYPOKINESIA [None]
  - HEADACHE [None]
  - CONSTIPATION [None]
  - BLADDER PAIN [None]
  - INTESTINAL OBSTRUCTION [None]
  - LIMB INJURY [None]
  - FEELING ABNORMAL [None]
  - ABDOMINAL DISCOMFORT [None]
  - ASTHENIA [None]
  - NERVOUS SYSTEM DISORDER [None]
  - DIARRHOEA [None]
